FAERS Safety Report 9281346 (Version 1)
Quarter: 2013Q2

REPORT INFORMATION
  Report Type: Spontaneous
  Country: AT (occurrence: AT)
  Receive Date: 20130509
  Receipt Date: 20130509
  Transmission Date: 20140414
  Serious: Yes (Other)
  Sender: FDA-Public Use
  Company Number: AT-ASTRAZENECA-2013SE20075

PATIENT
  Age: 4792 Week
  Sex: Male
  Weight: 81 kg

DRUGS (3)
  1. VIMOVO [Suspect]
     Indication: BACK PAIN
     Dosage: 2 DF DAILY, 2X1
     Route: 048
     Dates: start: 20130207, end: 20130208
  2. MEXALEN [Concomitant]
     Indication: PAIN
     Dosage: 500, 2X1
     Route: 048
     Dates: start: 20130206, end: 20130208
  3. NOVALGIN [Concomitant]
     Indication: PAIN
     Dosage: 25
     Route: 048
     Dates: start: 20130206, end: 20130208

REACTIONS (2)
  - Hot flush [Unknown]
  - Dizziness [Recovered/Resolved]
